FAERS Safety Report 16808173 (Version 2)
Quarter: 2019Q3

REPORT INFORMATION
  Report Type: Spontaneous
  Country: US (occurrence: US)
  Receive Date: 20190916
  Receipt Date: 20190917
  Transmission Date: 20191005
  Serious: No
  Sender: FDA-Public Use
  Company Number: US-JNJFOC-20190914139

PATIENT
  Sex: Female
  Weight: 59.02 kg

DRUGS (1)
  1. WOMENS ROGAINE [Suspect]
     Active Substance: MINOXIDIL
     Indication: PRODUCT USED FOR UNKNOWN INDICATION
     Dosage: %FREQUENCY%
     Route: 061

REACTIONS (4)
  - Seborrhoea [Recovered/Resolved]
  - Application site exfoliation [Recovered/Resolved]
  - Therapeutic product effect delayed [Unknown]
  - Dandruff [Recovered/Resolved]
